FAERS Safety Report 5226148-X (Version None)
Quarter: 2007Q1

REPORT INFORMATION
  Report Type: 
  Country: None (occurrence: None)
  Receive Date: 20070129
  Receipt Date: 20070116
  Transmission Date: 20070707
  Serious: Yes (Other)
  Sender: FDA-Public Use
  Company Number: 2006BI016503

PATIENT
  Age: 39 Year
  Sex: Female

DRUGS (3)
  1. AVONEX [Suspect]
     Indication: MULTIPLE SCLEROSIS
     Dosage: 30 UG;QW;IM
     Route: 030
     Dates: start: 19990101, end: 20060501
  2. DETROL LA [Concomitant]
  3. IRON [Concomitant]

REACTIONS (4)
  - CAROTID ARTERY ANEURYSM [None]
  - DISEASE PROGRESSION [None]
  - INTRACRANIAL ANEURYSM [None]
  - PROCEDURAL COMPLICATION [None]
